FAERS Safety Report 10706630 (Version 2)
Quarter: 2015Q1

REPORT INFORMATION
  Report Type: Report from Study
  Country: US (occurrence: US)
  Receive Date: 20150113
  Receipt Date: 20150113
  Transmission Date: 20150721
  Serious: Yes (Hospitalization)
  Sender: FDA-Public Use
  Company Number: US-EMD SERONO-E2B_7323089

PATIENT
  Sex: Male

DRUGS (3)
  1. TH-302 [Suspect]
     Active Substance: EVOFOSFAMIDE
     Dosage: 902.4 MG, CYCLE 3 DAY 8
     Route: 042
     Dates: start: 20140826, end: 20140826
  2. TH-302 [Suspect]
     Active Substance: EVOFOSFAMIDE
     Indication: MALIGNANT MELANOMA
     Dosage: 902.4 MG, CYCLE 1 DAY 1
     Route: 042
     Dates: start: 20140625, end: 20140625
  3. HX4 [Suspect]
     Active Substance: FLORTANIDAZOLE
     Indication: MALIGNANT MELANOMA
     Dosage: UNK
     Dates: start: 20140718, end: 20140718

REACTIONS (3)
  - Urinary tract infection [Recovered/Resolved]
  - Fatigue [Not Recovered/Not Resolved]
  - Abdominal distension [Recovered/Resolved]

NARRATIVE: CASE EVENT DATE: 20140904
